FAERS Safety Report 6673037-X (Version None)
Quarter: 2010Q2

REPORT INFORMATION
  Report Type: 
  Country: None (occurrence: None)
  Receive Date: 20100408
  Receipt Date: 20100331
  Transmission Date: 20101027
  Serious: Yes (Other)
  Sender: FDA-Public Use
  Company Number: PHHY2010BR19803

PATIENT
  Sex: Female
  Weight: 66 kg

DRUGS (1)
  1. FEMARA [Suspect]
     Indication: BREAST CANCER
     Dosage: 01 TABLET DAILY
     Route: 048
     Dates: start: 20091001

REACTIONS (1)
  - HYPERGLYCAEMIA [None]
